FAERS Safety Report 7625998-X (Version None)
Quarter: 2011Q3

REPORT INFORMATION
  Report Type: 
  Country: None (occurrence: None)
  Receive Date: 20110713
  Receipt Date: 20110705
  Transmission Date: 20111222
  Serious: Yes (Death)
  Sender: FDA-Public Use
  Company Number: JPI-P-012967

PATIENT
  Age: 48 Year
  Sex: Female
  Weight: 54.3409 kg

DRUGS (9)
  1. XYREM [Suspect]
     Indication: NARCOLEPSY
     Dosage: SEE IMAGE
     Route: 048
     Dates: start: 20101001, end: 20101001
  2. XYREM [Suspect]
     Indication: NARCOLEPSY
     Dosage: SEE IMAGE
     Route: 048
     Dates: start: 20101001, end: 20101017
  3. XYREM [Suspect]
     Indication: NARCOLEPSY
     Dosage: SEE IMAGE
     Route: 048
     Dates: start: 20100924, end: 20101001
  4. XYREM [Suspect]
     Indication: NARCOLEPSY
     Dosage: SEE IMAGE
     Route: 048
     Dates: start: 20101018, end: 20101024
  5. ARMODAFINIL [Concomitant]
  6. MELOXICAM [Concomitant]
  7. ALPRAZOLAM [Concomitant]
  8. TRAMADOL HCL [Concomitant]
  9. METAXALONE [Concomitant]

REACTIONS (8)
  - RESPIRATORY ARREST [None]
  - SUDDEN DEATH [None]
  - NAUSEA [None]
  - BLOOD PRESSURE INCREASED [None]
  - DECREASED APPETITE [None]
  - ARRHYTHMIA [None]
  - VOMITING [None]
  - NERVOUS SYSTEM DISORDER [None]
